FAERS Safety Report 7247644-X (Version None)
Quarter: 2011Q1

REPORT INFORMATION
  Report Type: 
  Country: None (occurrence: None)
  Receive Date: 20110127
  Receipt Date: 20110117
  Transmission Date: 20110831
  Serious: Yes (Other)
  Sender: FDA-Public Use
  Company Number: SE-JNJFOC-20110104433

PATIENT
  Sex: Male

DRUGS (1)
  1. REMICADE [Suspect]
     Indication: MUSCULOSKELETAL PAIN
     Route: 042

REACTIONS (2)
  - HODGKIN'S DISEASE [None]
  - BLOOD IMMUNOGLOBULIN G DECREASED [None]
